FAERS Safety Report 5142651-5 (Version None)
Quarter: 2006Q4

REPORT INFORMATION
  Report Type: 
  Country: None (occurrence: None)
  Receive Date: 20061027
  Receipt Date: 20061012
  Transmission Date: 20070319
  Serious: Yes (Hospitalization, Other)
  Sender: FDA-Public Use
  Company Number: US200610002390

PATIENT
  Age: 53 Year
  Sex: Male

DRUGS (4)
  1. HUMULIN N [Suspect]
     Indication: DIABETES MELLITUS
     Dosage: 24 U, EACH MORNING, UNK; SEE IMAGE
     Dates: start: 19800101
  2. HUMULIN N [Suspect]
     Indication: DIABETES MELLITUS
     Dosage: 24 U, EACH MORNING, UNK; SEE IMAGE
     Dates: start: 19800101
  3. HUMULIN R [Suspect]
     Indication: DIABETES MELLITUS
     Dosage: 20 U, EACH MORNING, UNK; SEE IMAGE
     Dates: start: 19800101
  4. HUMULIN R [Suspect]
     Indication: DIABETES MELLITUS
     Dosage: 20 U, EACH MORNING, UNK; SEE IMAGE
     Dates: start: 19800101

REACTIONS (4)
  - CEREBROVASCULAR ACCIDENT [None]
  - LOSS OF CONSCIOUSNESS [None]
  - MYOCARDIAL INFARCTION [None]
  - VISUAL DISTURBANCE [None]
